FAERS Safety Report 5250215-8 (Version None)
Quarter: 2007Q1

REPORT INFORMATION
  Report Type: 
  Country: None (occurrence: None)
  Receive Date: 20070228
  Receipt Date: 20060227
  Transmission Date: 20070707
  Serious: No
  Sender: FDA-Public Use
  Company Number: US-GLAXOSMITHKLINE-A0595299A

PATIENT
  Age: 76 Year
  Sex: Female

DRUGS (6)
  1. LAMICTAL [Suspect]
     Route: 048
     Dates: start: 20050901
  2. ESTROGENS SOL/INJ [Concomitant]
  3. ASPIRIN [Concomitant]
  4. PRAVACHOL [Concomitant]
  5. ANTIHYPERTENSIVE [Concomitant]
  6. VITAMINS [Concomitant]

REACTIONS (1)
  - ALOPECIA [None]
